FAERS Safety Report 8778806 (Version 2)
Quarter: 2012Q4

REPORT INFORMATION
  Report Type: 
  Country: US (occurrence: US)
  Receive Date: 20120912
  Receipt Date: 20121001
  Transmission Date: 20130627
  Serious: Yes (Death)
  Sender: FDA-Public Use
  Company Number: PHEH2012US017661

PATIENT
  Age: 53 Year
  Sex: Male

DRUGS (1)
  1. ZOMETA [Suspect]
     Indication: SALIVARY GLAND NEOPLASM
     Dosage: Every 4 weeks
     Route: 042
     Dates: start: 20110920

REACTIONS (1)
  - Adenocarcinoma [Fatal]
